FAERS Safety Report 15789082 (Version 1)
Quarter: 2019Q1

REPORT INFORMATION
  Report Type: Spontaneous
  Country: US (occurrence: US)
  Receive Date: 20190104
  Receipt Date: 20190104
  Transmission Date: 20190417
  Serious: No
  Sender: FDA-Public Use
  Company Number: US-PFIZER INC-2019003550

PATIENT
  Age: 16 Year
  Sex: Male

DRUGS (1)
  1. GENOTROPIN MQ [Suspect]
     Active Substance: SOMATROPIN
     Indication: KABUKI MAKE-UP SYNDROME
     Dosage: 2 MG, DAILY

REACTIONS (5)
  - Product use in unapproved indication [Unknown]
  - Product dose omission [Unknown]
  - Arthralgia [Unknown]
  - Nocturia [Unknown]
  - Gait disturbance [Unknown]
